FAERS Safety Report 5589955-X (Version None)
Quarter: 2008Q1

REPORT INFORMATION
  Report Type: 
  Country: None (occurrence: None)
  Receive Date: 20080114
  Receipt Date: 20080104
  Transmission Date: 20080703
  Serious: Yes (Death)
  Sender: FDA-Public Use
  Company Number: US-JNJFOC-20080101058

PATIENT
  Age: 55 Year
  Sex: Male

DRUGS (8)
  1. RISPERIDONE [Suspect]
     Indication: SUICIDE ATTEMPT
     Route: 048
  2. VERAPAMIL [Suspect]
     Indication: SUICIDE ATTEMPT
     Route: 048
  3. GABAPENTIN [Suspect]
     Indication: SUICIDE ATTEMPT
     Route: 048
  4. ACETAMINOPHEN AND HYDROCODONE BITARTRATE [Suspect]
     Indication: SUICIDE ATTEMPT
     Route: 048
  5. MIRTAZAPINE [Suspect]
     Indication: SUICIDE ATTEMPT
     Route: 048
  6. ACETAMINOPHEN [Suspect]
     Route: 048
  7. ACETAMINOPHEN [Suspect]
     Indication: SUICIDE ATTEMPT
     Route: 048
  8. PRAVASTATIN [Suspect]
     Indication: SUICIDE ATTEMPT

REACTIONS (2)
  - COMPLETED SUICIDE [None]
  - DRUG TOXICITY [None]
